FAERS Safety Report 6046216-2 (Version None)
Quarter: 2009Q1

REPORT INFORMATION
  Report Type: 
  Country: None (occurrence: None)
  Receive Date: 20090122
  Receipt Date: 20081126
  Transmission Date: 20090719
  Serious: Yes (Other)
  Sender: FDA-Public Use
  Company Number: GB-PFIZER INC-2008158109

PATIENT
  Sex: Female
  Weight: 68 kg

DRUGS (7)
  1. CHAMPIX [Suspect]
     Indication: SMOKING CESSATION THERAPY
     Dosage: UNK
     Route: 048
  2. VENTOLIN [Concomitant]
     Indication: CHRONIC OBSTRUCTIVE PULMONARY DISEASE
     Dosage: UNK
  3. CIMETIDINE [Concomitant]
     Indication: PEPTIC ULCER
     Dosage: 400 MG, 4X/DAY
     Route: 048
  4. FEXOFENADINE [Concomitant]
     Indication: URTICARIA
     Dosage: 180 MG, 1X/DAY
  5. INDAPAMIDE [Concomitant]
     Indication: JOINT SWELLING
     Dosage: 2.5 MG, UNK
  6. ESTROGENS CONJUGATED [Concomitant]
     Indication: HORMONE REPLACEMENT THERAPY
     Dosage: UNK
  7. ESTROGENS CONJUGATED [Concomitant]
     Dosage: .625 MG, 1X/DAY

REACTIONS (2)
  - FEELING ABNORMAL [None]
  - IMPAIRED DRIVING ABILITY [None]
